FAERS Safety Report 8514006-4 (Version None)
Quarter: 2012Q3

REPORT INFORMATION
  Report Type: 
  Country: None (occurrence: None)
  Receive Date: 20120717
  Receipt Date: 20120704
  Transmission Date: 20120928
  Serious: Yes (Hospitalization, Other)
  Sender: FDA-Public Use
  Company Number: JP-JNJFOC-20120704451

PATIENT
  Age: 44 Year
  Sex: Male

DRUGS (5)
  1. RISPERDAL [Suspect]
     Route: 048
  2. RISPERDAL [Suspect]
     Route: 048
  3. RISPERDAL [Suspect]
     Indication: SCHIZOPHRENIA, PARANOID TYPE
     Route: 048
  4. RISPERDAL [Suspect]
     Route: 048
  5. RISPERDAL [Suspect]
     Route: 048

REACTIONS (7)
  - SUICIDE ATTEMPT [None]
  - HALLUCINATION, AUDITORY [None]
  - HYPOKINESIA [None]
  - DELUSION [None]
  - APHASIA [None]
  - FLUSHING [None]
  - CHOKING [None]
